FAERS Safety Report 6519204-7 (Version None)
Quarter: 2009Q4

REPORT INFORMATION
  Report Type: 
  Country: None (occurrence: None)
  Receive Date: 20091228
  Receipt Date: 20091218
  Transmission Date: 20100525
  Serious: Yes (Other)
  Sender: FDA-Public Use
  Company Number: CA-ABBOTT-09P-028-0598018-00

PATIENT
  Sex: Male

DRUGS (5)
  1. HUMIRA [Suspect]
     Indication: PSORIATIC ARTHROPATHY
     Route: 058
     Dates: start: 20040101, end: 20090601
  2. ASPIRIN [Concomitant]
     Indication: DRUG USE FOR UNKNOWN INDICATION
  3. TRIAZIDE [Concomitant]
     Indication: DRUG USE FOR UNKNOWN INDICATION
  4. AMITRIPTYLINE [Concomitant]
     Indication: DRUG USE FOR UNKNOWN INDICATION
  5. VENTOLIN [Concomitant]
     Indication: DRUG USE FOR UNKNOWN INDICATION

REACTIONS (2)
  - AORTIC ANEURYSM [None]
  - ARTHRITIS [None]
